FAERS Safety Report 4897060-0 (Version None)
Quarter: 2006Q1

REPORT INFORMATION
  Report Type: 
  Country: None (occurrence: None)
  Receive Date: 20060127
  Receipt Date: 20040812
  Transmission Date: 20060701
  Serious: Yes (Death)
  Sender: FDA-Public Use
  Company Number: 207292

PATIENT
  Age: 81 Year
  Sex: Male

DRUGS (1)
  1. ACTIVASE [Suspect]
     Indication: CEREBROVASCULAR ACCIDENT
     Dosage: 50 MG, INTRAVENOUS
     Route: 042
     Dates: start: 20030716, end: 20030716

REACTIONS (2)
  - PANCREATITIS ACUTE [None]
  - SHOCK [None]
